FAERS Safety Report 6111625-X (Version None)
Quarter: 2009Q1

REPORT INFORMATION
  Report Type: 
  Country: None (occurrence: None)
  Receive Date: 20090310
  Receipt Date: 20090310
  Transmission Date: 20090719
  Serious: No
  Sender: FDA-Public Use
  Company Number: None

PATIENT
  Age: 74 Year
  Sex: Female
  Weight: 65.7716 kg

DRUGS (1)
  1. LYRICA [Suspect]
     Indication: SCIATICA
     Dosage: 1 CAPSULE TWICE DAILY PO
     Route: 048
     Dates: start: 20081101, end: 20090201

REACTIONS (9)
  - ABDOMINAL DISTENSION [None]
  - BLADDER DISORDER [None]
  - INADEQUATE ANALGESIA [None]
  - INSOMNIA [None]
  - LETHARGY [None]
  - MICTURITION DISORDER [None]
  - NOCTURIA [None]
  - VISION BLURRED [None]
  - WEIGHT INCREASED [None]
